FAERS Safety Report 7771893-5 (Version None)
Quarter: 2011Q3

REPORT INFORMATION
  Report Type: 
  Country: None (occurrence: None)
  Receive Date: 20110922
  Receipt Date: 20100921
  Transmission Date: 20111222
  Serious: No
  Sender: FDA-Public Use
  Company Number: US-ASTRAZENECA-2010SE40053

PATIENT
  Sex: Female
  Weight: 76.7 kg

DRUGS (7)
  1. DEPAKOTE [Concomitant]
     Indication: ANXIETY
  2. CALCIUM CARBONATE [Concomitant]
  3. SYNTHROID [Concomitant]
     Indication: THYROID DISORDER
  4. LORAZEPAM [Concomitant]
     Indication: ANXIETY
  5. VIT. D [Concomitant]
  6. SEROQUEL [Suspect]
     Indication: ANXIETY
     Route: 048
  7. TRILEPTAL [Concomitant]
     Indication: ANXIETY
     Dosage: 300 MG IN THE MORNING AND 600 IN THE EVENING

REACTIONS (4)
  - AGGRESSION [None]
  - INSOMNIA [None]
  - ABNORMAL BEHAVIOUR [None]
  - DRUG DOSE OMISSION [None]
